FAERS Safety Report 6247347-4 (Version None)
Quarter: 2009Q2

REPORT INFORMATION
  Report Type: 
  Country: None (occurrence: None)
  Receive Date: 20090626
  Receipt Date: 20090615
  Transmission Date: 20091009
  Serious: Yes (Hospitalization)
  Sender: FDA-Public Use
  Company Number: B0107322A

PATIENT
  Age: 65 Year
  Sex: Male

DRUGS (4)
  1. VALTREX [Suspect]
     Indication: HERPES ZOSTER
     Dosage: 1000MG PER DAY
     Route: 048
     Dates: start: 20010502, end: 20010506
  2. CLINORIL [Concomitant]
  3. THEO-DUR [Concomitant]
  4. DIALYSIS [Concomitant]

REACTIONS (9)
  - AGITATION [None]
  - ASTHENIA [None]
  - DRUG TOXICITY [None]
  - DYSLALIA [None]
  - DYSPHAGIA [None]
  - HALLUCINATION [None]
  - INSOMNIA [None]
  - NERVOUS SYSTEM DISORDER [None]
  - SPEECH DISORDER [None]
